FAERS Safety Report 26208822 (Version 1)
Quarter: 2025Q4

REPORT INFORMATION
  Report Type: Spontaneous
  Country: US (occurrence: None)
  Receive Date: 20251229
  Receipt Date: 20251229
  Transmission Date: 20260118
  Serious: Yes (Hospitalization, Disabling)
  Sender: FDA-CTU
  Company Number: None

PATIENT
  Age: 31 Year
  Sex: Male
  Weight: 117 kg

DRUGS (3)
  1. OSELTAMIVIR [Suspect]
     Active Substance: OSELTAMIVIR
     Indication: Influenza
     Dosage: OTHER QUANTITY : 1 CAPSULE(S);?FREQUENCY : TWICE A DAY;
     Route: 048
     Dates: start: 20251224, end: 20251226
  2. Levothyroxin 0.150mg [Concomitant]
  3. OLLY Men^s Multi vitamin [Concomitant]

REACTIONS (2)
  - Feeling abnormal [None]
  - Insomnia [None]

NARRATIVE: CASE EVENT DATE: 20251224
